FAERS Safety Report 7503179-8 (Version None)
Quarter: 2011Q2

REPORT INFORMATION
  Report Type: 
  Country: None (occurrence: None)
  Receive Date: 20110525
  Receipt Date: 20101105
  Transmission Date: 20111010
  Serious: No
  Sender: FDA-Public Use
  Company Number: US-NOVEN-ALL1-2010-05813

PATIENT
  Sex: Male
  Weight: 42.177 kg

DRUGS (5)
  1. CLARITIN                           /00413701/ [Concomitant]
     Dosage: UNK MG, AS REQ'D
     Route: 048
  2. DAYTRANA [Suspect]
     Dosage: 15 MG, 1X/DAY:QD
     Route: 062
     Dates: start: 20101001, end: 20101001
  3. DAYTRANA [Suspect]
     Dosage: 10 MG, 1X/DAY:QD
     Route: 062
     Dates: start: 20100901, end: 20101001
  4. SINGULAIR [Concomitant]
     Dosage: UNK MG, AS REQ'D
     Route: 048
  5. DAYTRANA [Suspect]
     Dosage: 10 MG, 1X/DAY:QD
     Route: 062
     Dates: start: 20101001

REACTIONS (4)
  - NAUSEA [None]
  - PRODUCT QUALITY ISSUE [None]
  - DECREASED APPETITE [None]
  - ABNORMAL LOSS OF WEIGHT [None]
